FAERS Safety Report 6266560-3 (Version None)
Quarter: 2009Q3

REPORT INFORMATION
  Report Type: 
  Country: None (occurrence: None)
  Receive Date: 20090710
  Receipt Date: 20090702
  Transmission Date: 20100115
  Serious: Yes (Other)
  Sender: FDA-Public Use
  Company Number: CHPA2009US14610

PATIENT
  Age: 45 Year
  Sex: Male
  Weight: 71.2 kg

DRUGS (1)
  1. VOLTAREN [Suspect]
     Indication: JOINT SWELLING
     Dosage: SEVERAL TIMES A DAY, TOPICAL
     Route: 061
     Dates: start: 20090501, end: 20090702

REACTIONS (4)
  - DIZZINESS [None]
  - PARALYSIS [None]
  - THROAT IRRITATION [None]
  - WRONG TECHNIQUE IN DRUG USAGE PROCESS [None]
